FAERS Safety Report 9064348 (Version 3)
Quarter: 2014Q4

REPORT INFORMATION
  Report Type: Report from Study
  Country: GR (occurrence: GR)
  Receive Date: 20130213
  Receipt Date: 20141219
  Transmission Date: 20150529
  Serious: Yes (Hospitalization, Other)
  Sender: FDA-Public Use
  Company Number: PHHY2013GR008048

PATIENT
  Age: 32 Year
  Sex: Male
  Weight: 80 kg

DRUGS (5)
  1. NEURONTIN [Concomitant]
     Active Substance: GABAPENTIN
     Indication: ATAXIA
  2. NEURONTIN [Concomitant]
     Active Substance: GABAPENTIN
     Indication: DYSAESTHESIA
     Dosage: 300 MG, TID
     Route: 065
  3. GILENYA [Suspect]
     Active Substance: FINGOLIMOD HYDROCHLORIDE
     Indication: MULTIPLE SCLEROSIS
     Dosage: 0.5 MG, QD
     Route: 048
     Dates: start: 20121115, end: 20130121
  4. FILICINE [Concomitant]
     Indication: MULTIPLE SCLEROSIS
     Dosage: 1 DF, QD
     Route: 065
  5. IDEOS [Concomitant]
     Active Substance: CALCIUM CARBONATE\CHOLECALCIFEROL
     Indication: MULTIPLE SCLEROSIS
     Dosage: 1 DF, QD
     Route: 065

REACTIONS (4)
  - Visual field defect [Unknown]
  - Optic neuritis [Unknown]
  - Blindness [Not Recovered/Not Resolved]
  - Visual acuity reduced [Unknown]

NARRATIVE: CASE EVENT DATE: 20130121
